FAERS Safety Report 9807022 (Version 1)
Quarter: 2014Q1

REPORT INFORMATION
  Report Type: Report from Study
  Country: US (occurrence: US)
  Receive Date: 20140110
  Receipt Date: 20140110
  Transmission Date: 20141002
  Serious: Yes (Other)
  Sender: FDA-Public Use
  Company Number: US-ROCHE-1314962

PATIENT
  Sex: Female

DRUGS (20)
  1. LUCENTIS [Suspect]
     Indication: CYSTOID MACULAR OEDEMA
     Dosage: OD
     Route: 050
     Dates: start: 20110707
  2. LUCENTIS [Suspect]
     Dosage: OS
     Route: 050
     Dates: start: 20100210
  3. LUCENTIS [Suspect]
     Dosage: RIGHT EYE
     Route: 050
     Dates: start: 20110519
  4. AVASTIN [Suspect]
     Indication: CYSTOID MACULAR OEDEMA
     Dosage: INJECTION IN OD
     Route: 050
     Dates: start: 20100210
  5. AVASTIN [Suspect]
     Dosage: INJECTION IN OS
     Route: 050
     Dates: start: 20080521
  6. AVASTIN [Suspect]
     Dosage: LEFT EYE
     Route: 050
     Dates: start: 200807
  7. ACTOS [Concomitant]
     Dosage: AS DIRECTED
     Route: 065
  8. ASPIRIN [Concomitant]
     Dosage: AS DIRECTED
     Route: 065
  9. LISINOPRIL [Concomitant]
     Dosage: AS DIRECTED
     Route: 065
  10. LORATADINE [Concomitant]
     Dosage: AS DIRECTED
     Route: 065
  11. METFORMIN [Concomitant]
     Dosage: AS DIRECTED
     Route: 065
  12. OMEPRAZOLE [Concomitant]
     Dosage: AS DIRECTED
     Route: 065
  13. PRANDIN [Concomitant]
     Dosage: AS DIRECTED
     Route: 065
  14. PRIMIDONE [Concomitant]
     Dosage: AS DIRECTED
     Route: 065
  15. SIMVASTATIN [Concomitant]
     Dosage: AS DIRECTED
     Route: 065
  16. ACULAR LS [Concomitant]
     Dosage: BOTH EYES
     Route: 065
  17. PROPARACAINE [Concomitant]
     Indication: ANAESTHESIA
     Route: 061
  18. LIDOCAINE [Concomitant]
     Indication: ANAESTHESIA
     Dosage: 2 PERCENT
     Route: 065
  19. POVIDONE-IODINE [Concomitant]
     Dosage: CONJUNCTIVAL 5 PERCENT AND 10 PERCENT
     Route: 065
  20. VIGAMOX [Concomitant]
     Route: 061

REACTIONS (7)
  - Retinal oedema [Unknown]
  - Visual impairment [Recovered/Resolved]
  - Retinal aneurysm [Unknown]
  - Pupil fixed [Unknown]
  - Visual acuity reduced [Unknown]
  - Retinal cyst [Unknown]
  - Macular reflex abnormal [Unknown]
